FAERS Safety Report 5528522-0 (Version None)
Quarter: 2007Q4

REPORT INFORMATION
  Report Type: 
  Country: None (occurrence: None)
  Receive Date: 20071123
  Receipt Date: 20071108
  Transmission Date: 20080405
  Serious: Yes (Other)
  Sender: FDA-Public Use
  Company Number: PHO-2007-054

PATIENT
  Age: 64 Year
  Sex: Female

DRUGS (2)
  1. PHOTOFRIN [Suspect]
     Indication: GLIOMA
     Dosage: 2MG/KG INTRAVENOUS   1 ADMINISTRATION
     Route: 042
  2. INTRALIPIDR (LIPID SOLUTION) [Concomitant]

REACTIONS (1)
  - TRIGEMINAL NEURALGIA [None]
